FAERS Safety Report 6344419-0 (Version None)
Quarter: 2009Q3

REPORT INFORMATION
  Report Type: 
  Country: None (occurrence: None)
  Receive Date: 20090821
  Receipt Date: 20090506
  Transmission Date: 20100115
  Serious: No
  Sender: FDA-Public Use
  Company Number: 8045825

PATIENT
  Sex: Female

DRUGS (4)
  1. CIMZIA [Suspect]
     Dosage: 400 MG SC
     Route: 058
  2. BENTYL [Concomitant]
  3. IMODIUM /00384302/ [Concomitant]
  4. TYLENOL (CAPLET) [Concomitant]

REACTIONS (3)
  - COUGH [None]
  - TUBERCULOSIS [None]
  - VISION BLURRED [None]
